FAERS Safety Report 21121097 (Version 1)
Quarter: 2022Q3

REPORT INFORMATION
  Report Type: Report from Study
  Country: US (occurrence: US)
  Receive Date: 20220722
  Receipt Date: 20220722
  Transmission Date: 20221027
  Serious: Yes (Hospitalization)
  Sender: FDA-Public Use
  Company Number: US-MIRM-000461

PATIENT
  Age: 5 Year
  Sex: Female

DRUGS (11)
  1. LIVMARLI [Suspect]
     Active Substance: MARALIXIBAT CHLORIDE
     Indication: Alagille syndrome
     Route: 048
     Dates: start: 20211118, end: 20220522
  2. 1328878 (GLOBALC3Sep19): Vitamin E [Concomitant]
     Indication: Product used for unknown indication
  3. 4323132 (GLOBALC3Sep19): DEKAs Plus [Concomitant]
     Indication: Product used for unknown indication
  4. 1328307 (GLOBALC3Sep19): Sodium bicarbonate [Concomitant]
     Indication: Product used for unknown indication
  5. 1324920 (GLOBALC3Sep19): hydroxyzine HCL [Concomitant]
     Indication: Product used for unknown indication
  6. 1262928 (GLOBALC3Sep19): Calcitriol [Concomitant]
     Indication: Product used for unknown indication
  7. 1608892 (GLOBALC3Sep19): Amlodipine Bes+syrspend SF [Concomitant]
     Indication: Product used for unknown indication
  8. 2788054 (GLOBALC3Sep19): Naltrexone HCL [Concomitant]
     Indication: Product used for unknown indication
  9. 1328139 (GLOBALC3Sep19): Rifampin+syrspend SF [Concomitant]
     Indication: Product used for unknown indication
  10. 1328777 (GLOBALC3Sep19): Ursodiol+syrspend SF [Concomitant]
     Indication: Product used for unknown indication
  11. 1328916 (GLOBALC3Sep19): Vitamin K [Concomitant]
     Indication: Product used for unknown indication

REACTIONS (1)
  - Liver transplant [Recovered/Resolved]

NARRATIVE: CASE EVENT DATE: 20220522
